FAERS Safety Report 5535265-6 (Version None)
Quarter: 2007Q4

REPORT INFORMATION
  Report Type: 
  Country: None (occurrence: None)
  Receive Date: 20071206
  Receipt Date: 20071204
  Transmission Date: 20080405
  Serious: Yes (Other)
  Sender: FDA-Public Use
  Company Number: DE-BRISTOL-MYERS SQUIBB COMPANY-14004949

PATIENT

DRUGS (1)
  1. APROVEL TABS [Suspect]
     Indication: HYPERTENSION
     Route: 048

REACTIONS (1)
  - BRADYCARDIA [None]
